FAERS Safety Report 15653786 (Version 1)
Quarter: 2018Q4

REPORT INFORMATION
  Report Type: Spontaneous
  Country: US (occurrence: US)
  Receive Date: 20181123
  Receipt Date: 20181123
  Transmission Date: 20190205
  Serious: Yes (Other)
  Sender: FDA-Public Use
  Company Number: None

PATIENT
  Age: 70 Year
  Sex: Female
  Weight: 90 kg

DRUGS (14)
  1. HYDROCODONE/ACETAMINOPHEN 10-325 [Suspect]
     Active Substance: ACETAMINOPHEN\HYDROCODONE
     Indication: PSORIATIC ARTHROPATHY
     Dosage: ?          QUANTITY:1 TABLET(S);?
     Route: 048
     Dates: start: 20181122, end: 20181123
  2. HYDROCODONE/ACETAMINOPHEN 10-325 [Suspect]
     Active Substance: ACETAMINOPHEN\HYDROCODONE
     Indication: FIBROMYALGIA
     Dosage: ?          QUANTITY:1 TABLET(S);?
     Route: 048
     Dates: start: 20181122, end: 20181123
  3. MULTIPLE VITAMIN [Concomitant]
     Active Substance: VITAMINS
  4. POTASSIUM CHLORIDE. [Concomitant]
     Active Substance: POTASSIUM CHLORIDE
  5. DEXILANT [Concomitant]
     Active Substance: DEXLANSOPRAZOLE
  6. ASPIRIN. [Concomitant]
     Active Substance: ASPIRIN
  7. CALCIUM [Concomitant]
     Active Substance: CALCIUM
  8. ZYRTEC [Concomitant]
     Active Substance: CETIRIZINE HYDROCHLORIDE
  9. COMBIGAN EYEDROPS [Concomitant]
  10. LUTEIN/ZEAXANTHIN [Concomitant]
  11. ASTAXANTHIN [Concomitant]
  12. VITAMIN D3 [Concomitant]
     Active Substance: CHOLECALCIFEROL
  13. HYDROCODONE/ACETAMINOPHEN 10-325 [Suspect]
     Active Substance: ACETAMINOPHEN\HYDROCODONE
     Indication: BACK PAIN
     Dosage: ?          QUANTITY:1 TABLET(S);?
     Route: 048
     Dates: start: 20181122, end: 20181123
  14. VALSARTAN 160/HYDROCHLOROTHIAZIDE [Concomitant]

REACTIONS (1)
  - Blood pressure decreased [None]

NARRATIVE: CASE EVENT DATE: 20181123
